FAERS Safety Report 10243296 (Version 5)
Quarter: 2014Q3

REPORT INFORMATION
  Report Type: Spontaneous
  Country: GB (occurrence: GB)
  Receive Date: 20140618
  Receipt Date: 20140820
  Transmission Date: 20150326
  Serious: Yes (Hospitalization, Other)
  Sender: FDA-Public Use
  Company Number: PHFR2014GB004214

PATIENT
  Sex: Female
  Weight: 80.6 kg

DRUGS (8)
  1. RAMIPRIL. [Suspect]
     Active Substance: RAMIPRIL
     Indication: HYPERTENSION
     Dosage: 2.5 MG, UNK CAPSULE
  2. VALSARTAN. [Suspect]
     Active Substance: VALSARTAN
     Dosage: 320 MG TABLET
     Route: 048
     Dates: start: 20120723, end: 20140207
  3. IRBESARTAN ACTAVIS [Suspect]
     Active Substance: IRBESARTAN
     Indication: HYPERTENSION
     Dosage: UNK UKN, UNK
  4. BISOPROLOL [Concomitant]
     Active Substance: BISOPROLOL
     Indication: CORONARY ARTERY DISEASE
     Dosage: 2.5 MG, UNK
     Route: 048
     Dates: start: 20140225
  5. VALSARTAN. [Suspect]
     Active Substance: VALSARTAN
     Dosage: UNK UKN, TABLET
  6. VALSARTAN. [Suspect]
     Active Substance: VALSARTAN
     Indication: HYPERTENSION
     Dosage: 80 MG, CAPSULE
     Dates: start: 20120403, end: 20120430
  7. RAMIPRIL. [Suspect]
     Active Substance: RAMIPRIL
     Dosage: 10 MG, UNK TABLET LACTOSE FREE
     Route: 048
     Dates: start: 20140324, end: 20140613
  8. ASPIRIN. [Concomitant]
     Active Substance: ASPIRIN
     Indication: CORONARY ARTERY DISEASE
     Dosage: 75 MG, UNK
     Route: 048
     Dates: start: 20140226, end: 20140626

REACTIONS (23)
  - Feeling abnormal [Unknown]
  - Weight increased [Unknown]
  - Hepatic enzyme increased [Unknown]
  - Troponin increased [Unknown]
  - Blood glucose increased [Unknown]
  - Fear [Unknown]
  - Malaise [Unknown]
  - Drug ineffective [Unknown]
  - Pain [Unknown]
  - Mouth swelling [Unknown]
  - White blood cell count increased [Unknown]
  - Restlessness [Unknown]
  - Ear pain [Unknown]
  - Abdominal distension [Unknown]
  - Muscle strain [Unknown]
  - Chest pain [Unknown]
  - Swollen tongue [Unknown]
  - Tinnitus [Unknown]
  - Cell marker increased [Unknown]
  - Blood pressure increased [Unknown]
  - Nasal dryness [Unknown]
  - Alopecia [Unknown]
  - Abdominal discomfort [Unknown]
